FAERS Safety Report 6248944-2 (Version None)
Quarter: 2009Q2

REPORT INFORMATION
  Report Type: 
  Country: None (occurrence: None)
  Receive Date: 20090629
  Receipt Date: 20090617
  Transmission Date: 20091009
  Serious: Yes (Hospitalization)
  Sender: FDA-Public Use
  Company Number: NZ-AVENTIS-200916338GDDC

PATIENT
  Age: 62 Year
  Sex: Female

DRUGS (5)
  1. LEFLUNOMIDE [Suspect]
     Route: 048
     Dates: start: 20070801, end: 20080603
  2. PREDNISONE TAB [Concomitant]
     Route: 048
     Dates: start: 20030120
  3. ENALAPRIL [Concomitant]
     Route: 048
     Dates: start: 20060629
  4. ALENDRONATE [Concomitant]
     Route: 048
     Dates: start: 20051123
  5. OMEPRAZOLE [Concomitant]
     Route: 048
     Dates: start: 20030519

REACTIONS (1)
  - OSTEOMYELITIS [None]
